FAERS Safety Report 9183687 (Version 2)
Quarter: 2013Q2

REPORT INFORMATION
  Report Type: Spontaneous
  Country: CA (occurrence: CA)
  Receive Date: 20130322
  Receipt Date: 20130412
  Transmission Date: 20140414
  Serious: Yes (Other)
  Sender: FDA-Public Use
  Company Number: CA-JNJFOC-20111107067

PATIENT
  Age: 61 Year
  Sex: Male
  Weight: 145.15 kg

DRUGS (20)
  1. REMICADE [Suspect]
     Indication: COLITIS ULCERATIVE
     Route: 042
     Dates: start: 20110406, end: 20111228
  2. REMICADE [Suspect]
     Indication: CROHN^S DISEASE
     Route: 042
     Dates: start: 20110406, end: 20111228
  3. PREDNISONE [Concomitant]
     Indication: PREMEDICATION
     Route: 065
  4. TYLENOL [Concomitant]
     Indication: PREMEDICATION
     Route: 048
  5. BENADRYL [Concomitant]
     Indication: PREMEDICATION
     Route: 042
  6. SOLU-CORTEF [Concomitant]
     Indication: PREMEDICATION
     Route: 042
  7. PRADAXA [Concomitant]
     Route: 065
  8. FINASTERIDE [Concomitant]
     Route: 065
  9. ZYLOPRIM [Concomitant]
     Route: 065
  10. METOPROLOL [Concomitant]
     Route: 065
  11. SIMVASTATIN [Concomitant]
     Route: 065
  12. METFORMIN [Concomitant]
     Route: 065
  13. ENALAPRIL [Concomitant]
     Dosage: DOSAGE- 1.5 IN 1 DAY
     Route: 065
  14. FLOMAX [Concomitant]
     Dosage: DOSAGE- 1.5 IN 1 DAY
     Route: 065
  15. FUROSEMIDE [Concomitant]
     Route: 065
  16. SALOFALK [Concomitant]
     Route: 065
  17. SALOFALK [Concomitant]
     Route: 065
  18. NITRO-DUR [Concomitant]
     Route: 065
  19. LYRICA [Concomitant]
     Dosage: DOSAGE- 1.5 IN 1 DAY
     Route: 065
  20. PREDNISONE [Concomitant]
     Route: 065

REACTIONS (12)
  - Infusion related reaction [Recovering/Resolving]
  - Throat tightness [Recovering/Resolving]
  - Dyspnoea [Recovered/Resolved]
  - Wheezing [Recovered/Resolved]
  - Bronchospasm [Recovered/Resolved]
  - Back pain [Recovered/Resolved]
  - Eye swelling [Recovering/Resolving]
  - Flushing [Recovering/Resolving]
  - Chest discomfort [Recovering/Resolving]
  - Urticaria [Unknown]
  - Pruritus [Recovered/Resolved]
  - Burning sensation [Recovered/Resolved]
